FAERS Safety Report 9329689 (Version 1)
Quarter: 2013Q2

REPORT INFORMATION
  Report Type: Spontaneous
  Country: US (occurrence: US)
  Receive Date: 20130604
  Receipt Date: 20130604
  Transmission Date: 20140414
  Serious: No
  Sender: FDA-Public Use
  Company Number: US-SANOFI-AVENTIS-2013SA033357

PATIENT
  Sex: Female

DRUGS (4)
  1. LANTUS [Suspect]
     Dosage: DOSE:18 UNIT(S)
     Route: 051
  2. APIDRA [Suspect]
  3. NOVOLOG [Concomitant]
  4. BLOOD PRESSURE PILL [Concomitant]

REACTIONS (3)
  - Feeling abnormal [Unknown]
  - Hypertension [Unknown]
  - Blood glucose increased [Unknown]
